FAERS Safety Report 4488851-9 (Version None)
Quarter: 2004Q4

REPORT INFORMATION
  Report Type: 
  Country: None (occurrence: None)
  Receive Date: 20041029
  Receipt Date: 20041018
  Transmission Date: 20050328
  Serious: Yes (Death, Hospitalization)
  Sender: FDA-Public Use
  Company Number: NO-MERCK-0410NOR00020

PATIENT
  Age: 82 Year
  Sex: Female

DRUGS (11)
  1. VIOXX [Suspect]
     Route: 048
  2. PENICILLIN V POTASSIUM [Concomitant]
     Indication: CHOLECYSTITIS
     Route: 065
     Dates: start: 20040801, end: 20040801
  3. METRONIDAZOLE [Concomitant]
     Indication: CHOLECYSTITIS
     Route: 048
     Dates: start: 20040801, end: 20040801
  4. METOPROLOL TARTRATE [Concomitant]
     Route: 048
  5. ACETAMINOPHEN [Concomitant]
     Route: 065
  6. ZOPICLONE [Concomitant]
     Route: 065
  7. ESTRADIOL [Concomitant]
     Route: 065
  8. DORZOLAMIDE HYDROCHLORIDE AND TIMOLOL MALEATE [Concomitant]
     Route: 065
  9. PIVAMPICILLIN HYDROCHLORIDE [Concomitant]
     Route: 048
  10. TRAMADOL HYDROCHLORIDE [Concomitant]
     Route: 065
  11. FUROSEMIDE [Concomitant]
     Route: 065

REACTIONS (7)
  - ABDOMINAL PAIN UPPER [None]
  - DEATH [None]
  - DUODENAL ULCER HAEMORRHAGE [None]
  - HAEMATEMESIS [None]
  - MELAENA [None]
  - OXYGEN SATURATION DECREASED [None]
  - RESPIRATORY DISORDER [None]
